FAERS Safety Report 17395224 (Version 1)
Quarter: 2020Q1

REPORT INFORMATION
  Report Type: Spontaneous
  Country: US (occurrence: US)
  Receive Date: 20200124
  Receipt Date: 20200124
  Transmission Date: 20200409
  Serious: No
  Sender: FDA-Public Use
  Company Number: None

PATIENT
  Age: 68 Year
  Sex: Female

DRUGS (1)
  1. IBRANCE [Suspect]
     Active Substance: PALBOCICLIB
     Route: 048
     Dates: start: 201902

REACTIONS (6)
  - Rash [None]
  - Rash erythematous [None]
  - Swelling [None]
  - Feeling hot [None]
  - Contrast media allergy [None]
  - Rash pruritic [None]

NARRATIVE: CASE EVENT DATE: 20200124
